FAERS Safety Report 19847708 (Version 3)
Quarter: 2022Q1

REPORT INFORMATION
  Report Type: Spontaneous
  Country: US (occurrence: US)
  Receive Date: 20210917
  Receipt Date: 20220113
  Transmission Date: 20220423
  Serious: Yes (Death, Hospitalization)
  Sender: FDA-Public Use
  Company Number: US-VIFOR (INTERNATIONAL) INC.-VIT-2021-07389

PATIENT
  Age: 67 Year
  Sex: Male
  Weight: 81.5 kg

DRUGS (1)
  1. VELTASSA [Suspect]
     Active Substance: PATIROMER
     Indication: Hyperkalaemia
     Route: 048
     Dates: start: 20210505

REACTIONS (5)
  - Haematochezia [Unknown]
  - Large intestine perforation [Unknown]
  - Death [Fatal]
  - Diarrhoea [Unknown]
  - Off label use [Unknown]

NARRATIVE: CASE EVENT DATE: 20210505
